FAERS Safety Report 7347544-0 (Version None)
Quarter: 2011Q1

REPORT INFORMATION
  Report Type: 
  Country: None (occurrence: None)
  Receive Date: 20110311
  Receipt Date: 20110215
  Transmission Date: 20110831
  Serious: No
  Sender: FDA-Public Use
  Company Number: US-B.I. PHARMACEUTICALS,INC./RIDGEFIELD-2011-BP-05801BP

PATIENT
  Sex: Female

DRUGS (7)
  1. MULTIVITAMIN [Concomitant]
     Indication: PROPHYLAXIS
  2. FOLIC ACID [Concomitant]
     Indication: PROPHYLAXIS
  3. NASONEX [Concomitant]
     Indication: HYPERSENSITIVITY
  4. SPIRIVA [Suspect]
     Indication: BRONCHITIS CHRONIC
     Dosage: 18 MCG
     Route: 055
     Dates: start: 20060101
  5. METHOTREXATE [Concomitant]
     Indication: RHEUMATOID ARTHRITIS
  6. NEXIUM [Concomitant]
     Indication: ABDOMINAL DISCOMFORT
  7. CALCIUM + D [Concomitant]
     Indication: PROPHYLAXIS

REACTIONS (4)
  - DIARRHOEA [None]
  - FLATULENCE [None]
  - BLADDER DISORDER [None]
  - ATRIAL FIBRILLATION [None]
